FAERS Safety Report 4945138-5 (Version None)
Quarter: 2006Q1

REPORT INFORMATION
  Report Type: 
  Country: None (occurrence: None)
  Receive Date: 20060117
  Receipt Date: 20041209
  Transmission Date: 20060701
  Serious: Yes (Other)
  Sender: FDA-Public Use
  Company Number: A03200404156

PATIENT
  Age: 42 Year
  Sex: Female
  Weight: 64.4108 kg

DRUGS (5)
  1. PLAVIX [Suspect]
     Indication: MYOCARDIAL INFARCTION
     Dosage: 75 MG QD - ORAL
     Route: 048
     Dates: start: 20041208, end: 20041208
  2. PLAVIX [Suspect]
     Indication: STENT PLACEMENT
     Dosage: 75 MG QD - ORAL
     Route: 048
     Dates: start: 20041208, end: 20041208
  3. ACETYLSALICYLIC ACID SRT [Concomitant]
  4. CARVEDILOL [Concomitant]
  5. ATORVASTATIN [Concomitant]

REACTIONS (4)
  - CONTUSION [None]
  - HALLUCINATION [None]
  - PAIN IN EXTREMITY [None]
  - VISUAL DISTURBANCE [None]
